FAERS Safety Report 24606199 (Version 2)
Quarter: 2025Q1

REPORT INFORMATION
  Report Type: Spontaneous
  Country: US (occurrence: US)
  Receive Date: 20241112
  Receipt Date: 20250321
  Transmission Date: 20250408
  Serious: No
  Sender: JOHNSON AND JOHNSON
  Company Number: US-JNJFOC-20241102746

PATIENT
  Age: 82 Year
  Sex: Female

DRUGS (2)
  1. STELARA [Suspect]
     Active Substance: USTEKINUMAB
     Indication: Colitis
     Route: 058
  2. STELARA [Suspect]
     Active Substance: USTEKINUMAB

REACTIONS (5)
  - Inappropriate schedule of product administration [Unknown]
  - Syringe issue [Unknown]
  - Daydreaming [Unknown]
  - Change of bowel habit [Unknown]
  - Off label use [Unknown]

NARRATIVE: CASE EVENT DATE: 20241030
